FAERS Safety Report 9902794 (Version 2)
Quarter: 2014Q1

REPORT INFORMATION
  Report Type: Report from Study
  Country: CA (occurrence: CA)
  Receive Date: 20140217
  Receipt Date: 20140225
  Transmission Date: 20141002
  Serious: Yes (Other)
  Sender: FDA-Public Use
  Company Number: PHHY2014CA018447

PATIENT
  Sex: Female

DRUGS (1)
  1. CLOZARIL [Suspect]
     Indication: TREMOR
     Dosage: 12.5 MG, BID
     Dates: start: 20120824

REACTIONS (2)
  - Metastases to central nervous system [Unknown]
  - Delirium [Unknown]
